FAERS Safety Report 8123761-7 (Version None)
Quarter: 2012Q1

REPORT INFORMATION
  Report Type: 
  Country: None (occurrence: None)
  Receive Date: 20120208
  Receipt Date: 20120130
  Transmission Date: 20120608
  Serious: Yes (Other)
  Sender: FDA-Public Use
  Company Number: US-ASTRAZENECA-2012SE06165

PATIENT
  Age: 78 Year
  Sex: Male
  Weight: 97.5 kg

DRUGS (6)
  1. SPIRIVA [Concomitant]
  2. NAPROXEN [Concomitant]
  3. ADVAIR DISKUS 100/50 [Concomitant]
  4. ALTACE [Concomitant]
     Indication: BLOOD PRESSURE ABNORMAL
  5. PRIVONTEL [Concomitant]
  6. SYMBICORT [Suspect]
     Indication: CHRONIC OBSTRUCTIVE PULMONARY DISEASE
     Dosage: 1 PUFF TWO TIMES A DAY
     Route: 055
     Dates: start: 20100101

REACTIONS (2)
  - HAEMOPTYSIS [None]
  - CONDITION AGGRAVATED [None]
